FAERS Safety Report 7171497-1 (Version None)
Quarter: 2010Q4

REPORT INFORMATION
  Report Type: 
  Country: None (occurrence: None)
  Receive Date: 20101217
  Receipt Date: 20101210
  Transmission Date: 20110411
  Serious: Yes (Other)
  Sender: FDA-Public Use
  Company Number: BR-PFIZER INC-2010169047

PATIENT
  Age: 88 Year
  Sex: Female
  Weight: 46 kg

DRUGS (5)
  1. XALATAN [Suspect]
     Indication: GLAUCOMA
     Dosage: 1 DROP (1.5MCG) IN THE LEFT EYE, UNKNOWN FREQUENCY
     Route: 047
     Dates: start: 20090601
  2. COMBIGAN [Concomitant]
     Indication: GLAUCOMA
     Dosage: UNK
  3. MONOCORDIL [Concomitant]
     Indication: CARDIAC OPERATION
     Dosage: UNK
     Dates: start: 20020101
  4. SOMALGIN [Concomitant]
     Indication: CARDIAC OPERATION
     Dosage: UNK
     Dates: start: 20020101
  5. PROPRANOLOL [Concomitant]
     Indication: CARDIAC OPERATION
     Dosage: UNK
     Dates: start: 20020101

REACTIONS (1)
  - GLAUCOMA [None]
